FAERS Safety Report 13611177 (Version 1)
Quarter: 2017Q2

REPORT INFORMATION
  Report Type: Spontaneous
  Country: US (occurrence: US)
  Receive Date: 20170603
  Receipt Date: 20170603
  Transmission Date: 20170830
  Serious: Yes (Life-Threatening)
  Sender: FDA-Public Use
  Company Number: None

PATIENT
  Age: 72 Year
  Sex: Male
  Weight: 105 kg

DRUGS (1)
  1. THYMOGLOBULIN [Suspect]
     Active Substance: LAPINE T-LYMPHOCYTE IMMUNE GLOBULIN
     Indication: KIDNEY TRANSPLANT REJECTION
     Dosage: ?          OTHER FREQUENCY:ONCE;?
     Route: 042
     Dates: start: 20170513

REACTIONS (4)
  - Therapy cessation [None]
  - Product quality issue [None]
  - Oxygen saturation decreased [None]
  - Dyspnoea [None]

NARRATIVE: CASE EVENT DATE: 20170513
